FAERS Safety Report 4975189-6 (Version None)
Quarter: 2006Q2

REPORT INFORMATION
  Report Type: 
  Country: None (occurrence: None)
  Receive Date: 20060417
  Receipt Date: 20060417
  Transmission Date: 20061013
  Serious: Yes (Other)
  Sender: FDA-Public Use
  Company Number: None

PATIENT
  Age: 54 Year
  Sex: Female

DRUGS (2)
  1. AVAPRO [Suspect]
     Dosage: 75 MG PO
     Route: 048
  2. SEPTRA [Concomitant]

REACTIONS (2)
  - CONFUSIONAL STATE [None]
  - MUSCLE TWITCHING [None]
